FAERS Safety Report 15616117 (Version 3)
Quarter: 2019Q3

REPORT INFORMATION
  Report Type: Spontaneous
  Country: US (occurrence: US)
  Receive Date: 20181114
  Receipt Date: 20190708
  Transmission Date: 20191004
  Serious: No
  Sender: FDA-Public Use
  Company Number: US-PFIZER INC-2018468176

PATIENT
  Age: 62 Year
  Sex: Female

DRUGS (6)
  1. DOCETAXEL. [Suspect]
     Active Substance: DOCETAXEL
     Indication: BREAST CANCER METASTATIC
     Dosage: 156.75 MG, CYCLIC (EVERY THREE WEEKS, 4 CYCLES)
     Dates: start: 20160126, end: 20170517
  2. TAXOTERE [Concomitant]
     Active Substance: DOCETAXEL
     Indication: CHEMOTHERAPY
     Dosage: 147 MG, CYCLIC EVERY THREE WEEKS (2 CYCLES)
     Dates: start: 20170107, end: 20170517
  3. T4 (LEVOTHYROXINE) [Concomitant]
     Dosage: UNK
     Dates: start: 199806
  4. DOCETAXEL ACCORD [Suspect]
     Active Substance: DOCETAXEL
     Indication: BREAST CANCER METASTATIC
     Dosage: 156.75 MG, CYCLIC (EVERY THREE WEEKS, 04 CYCLES)
     Dates: start: 20160126, end: 20170517
  5. DOCETAXEL SANDOZ [Suspect]
     Active Substance: DOCETAXEL
     Indication: BREAST CANCER METASTATIC
     Dosage: 156.75 MG, CYCLIC (EVERY THREE WEEKS, 04 CYCLES)
     Dates: start: 20160126, end: 20170517
  6. PERJETA [Concomitant]
     Active Substance: PERTUZUMAB
     Indication: CHEMOTHERAPY
     Dosage: 420 MG, CYCLIC

REACTIONS (2)
  - Madarosis [Not Recovered/Not Resolved]
  - Alopecia [Not Recovered/Not Resolved]

NARRATIVE: CASE EVENT DATE: 201611
